FAERS Safety Report 23749158 (Version 1)
Quarter: 2024Q2

REPORT INFORMATION
  Report Type: Spontaneous
  Country: US (occurrence: None)
  Receive Date: 20240411
  Receipt Date: 20240411
  Transmission Date: 20240716
  Serious: No
  Sender: FDA-Public Use
  Company Number: None

PATIENT
  Age: 28 Year
  Sex: Male
  Weight: 104.33 kg

DRUGS (6)
  1. IBUTAMOREN MESYLATE [Suspect]
     Active Substance: IBUTAMOREN MESYLATE
     Indication: Nutritional supplementation
     Route: 048
     Dates: start: 20240306, end: 20240331
  2. SR9009 [Concomitant]
  3. GW-501516 [Concomitant]
     Active Substance: GW-501516
  4. GELATIN [Concomitant]
     Active Substance: GELATIN
  5. SILICON DIOXIDE [Concomitant]
     Active Substance: SILICON DIOXIDE
  6. RICE FLOUR [Concomitant]

REACTIONS (6)
  - Rectal haemorrhage [None]
  - Acute psychosis [None]
  - Hyperhidrosis [None]
  - Rectal neoplasm [None]
  - Product label confusion [None]
  - Product barcode issue [None]

NARRATIVE: CASE EVENT DATE: 20240306
